FAERS Safety Report 18948935 (Version 1)
Quarter: 2021Q1

REPORT INFORMATION
  Report Type: Spontaneous
  Country: US (occurrence: US)
  Receive Date: 20210227
  Receipt Date: 20210227
  Transmission Date: 20210420
  Serious: No
  Sender: FDA-Public Use
  Company Number: US-TEVA-2021-US-1885579

PATIENT
  Age: 66 Year
  Sex: Male
  Weight: 80.74 kg

DRUGS (4)
  1. ALBUTEROL. [Suspect]
     Active Substance: ALBUTEROL
  2. ALBUTEROL. [Suspect]
     Active Substance: ALBUTEROL
  3. ALBUTEROL. [Suspect]
     Active Substance: ALBUTEROL
  4. ALBUTEROL. [Suspect]
     Active Substance: ALBUTEROL
     Dosage: INHALER
     Route: 065

REACTIONS (2)
  - Cough [Unknown]
  - Adverse drug reaction [Unknown]
